FAERS Safety Report 17253937 (Version 1)
Quarter: 2020Q1

REPORT INFORMATION
  Report Type: Spontaneous
  Country: US (occurrence: US)
  Receive Date: 20200109
  Receipt Date: 20200109
  Transmission Date: 20200409
  Serious: Yes (Other)
  Sender: FDA-Public Use
  Company Number: US-SA-2020SA002913

PATIENT
  Age: 55 Year
  Sex: Male

DRUGS (1)
  1. DOCETAXEL. [Suspect]
     Active Substance: DOCETAXEL
     Indication: METASTASES TO LUNG

REACTIONS (10)
  - Tachypnoea [Unknown]
  - Cough [Unknown]
  - Tachycardia [Unknown]
  - Hypoxia [Unknown]
  - Respiratory failure [Unknown]
  - Lung opacity [Unknown]
  - Rales [Unknown]
  - Dyspnoea [Unknown]
  - Pyrexia [Unknown]
  - Disease progression [Unknown]
